FAERS Safety Report 7729636-7 (Version None)
Quarter: 2011Q3

REPORT INFORMATION
  Report Type: 
  Country: None (occurrence: None)
  Receive Date: 20110906
  Receipt Date: 20110901
  Transmission Date: 20111222
  Serious: Yes (Hospitalization, Other)
  Sender: FDA-Public Use
  Company Number: US-AMGEN-USASP2011042432

PATIENT
  Age: 47 Year
  Sex: Female

DRUGS (2)
  1. ENBREL [Suspect]
     Indication: RHEUMATOID ARTHRITIS
     Dosage: 50 MG, UNK
     Dates: start: 20000101
  2. TAMOXIFEN CITRATE [Concomitant]
     Dosage: UNK

REACTIONS (11)
  - BREAST CANCER [None]
  - MENINGIOMA [None]
  - RHEUMATOID ARTHRITIS [None]
  - MENORRHAGIA [None]
  - UTERINE MASS [None]
  - HAIR GROWTH ABNORMAL [None]
  - ATTENTION DEFICIT/HYPERACTIVITY DISORDER [None]
  - DRUG HYPERSENSITIVITY [None]
  - BREAST RECONSTRUCTION [None]
  - NASOPHARYNGITIS [None]
  - DYSMENORRHOEA [None]
